FAERS Safety Report 12681985 (Version 1)
Quarter: 2016Q3

REPORT INFORMATION
  Report Type: Spontaneous
  Country: CA (occurrence: CA)
  Receive Date: 20160824
  Receipt Date: 20160824
  Transmission Date: 20161109
  Serious: Yes (Other)
  Sender: FDA-Public Use
  Company Number: CA-MYLANLABS-2016M1034190

PATIENT

DRUGS (3)
  1. MYLAN-BUPROPION XL [Suspect]
     Active Substance: BUPROPION
     Indication: ANXIETY
  2. CIPRALEX [Concomitant]
     Active Substance: ESCITALOPRAM OXALATE
  3. MYLAN-BUPROPION XL [Suspect]
     Active Substance: BUPROPION
     Indication: DEPRESSION

REACTIONS (2)
  - Mental impairment [Recovered/Resolved]
  - Memory impairment [Recovered/Resolved]
